FAERS Safety Report 7818640-6 (Version None)
Quarter: 2011Q4

REPORT INFORMATION
  Report Type: 
  Country: None (occurrence: None)
  Receive Date: 20111018
  Receipt Date: 20111006
  Transmission Date: 20120403
  Serious: Yes (Hospitalization)
  Sender: FDA-Public Use
  Company Number: AR-AMGEN-ARGSP2011044183

PATIENT
  Age: 60 Year
  Sex: Female
  Weight: 60 kg

DRUGS (3)
  1. ENBREL [Suspect]
     Indication: RHEUMATOID ARTHRITIS
     Dosage: 50 MG, WEEKLY
     Route: 058
     Dates: start: 20080610, end: 20110729
  2. METHOTREXATE [Concomitant]
     Dosage: UNK
  3. VITAMINS                           /90003601/ [Concomitant]
     Dosage: UNK

REACTIONS (1)
  - VAGINAL HAEMORRHAGE [None]
